FAERS Safety Report 5861082-3 (Version None)
Quarter: 2008Q3

REPORT INFORMATION
  Report Type: 
  Country: None (occurrence: None)
  Receive Date: 20080827
  Receipt Date: 20080211
  Transmission Date: 20090109
  Serious: No
  Sender: FDA-Public Use
  Company Number: US-ABBOTT-08P-163-0438128-00

PATIENT
  Age: 79 Year
  Sex: Male
  Weight: 72.64 kg

DRUGS (7)
  1. COATED PDS [Suspect]
     Indication: BLOOD CHOLESTEROL INCREASED
     Route: 048
     Dates: start: 20071201, end: 20080101
  2. COATED PDS [Suspect]
     Route: 048
     Dates: start: 20080101, end: 20080101
  3. COATED PDS [Suspect]
     Route: 048
     Dates: start: 20080101, end: 20080201
  4. ACETYLSALICYLIC ACID SRT [Concomitant]
     Indication: CARDIOVASCULAR EVENT PROPHYLAXIS
     Route: 048
  5. CLOPIDOGREL [Concomitant]
     Indication: CARDIOVASCULAR EVENT PROPHYLAXIS
     Route: 048
  6. AMIODARONE HCL [Concomitant]
     Indication: CARDIOVASCULAR EVENT PROPHYLAXIS
     Route: 048
  7. BLOOD PRESSURE MEDICATION [Concomitant]
     Indication: CARDIOVASCULAR EVENT PROPHYLAXIS
     Route: 048

REACTIONS (4)
  - ABDOMINAL DISTENSION [None]
  - CONSTIPATION [None]
  - FLATULENCE [None]
  - MUSCLE SPASMS [None]
